FAERS Safety Report 9714004 (Version 2)
Quarter: 2015Q3

REPORT INFORMATION
  Report Type: Spontaneous
  Country: US (occurrence: US)
  Receive Date: 20131126
  Receipt Date: 20150803
  Transmission Date: 20151125
  Serious: No
  Sender: FDA-Public Use
  Company Number: US-GILEAD-2008-0018564

PATIENT
  Age: 51 Year
  Sex: Female
  Weight: 52.62 kg

DRUGS (8)
  1. DIGOXIN. [Concomitant]
     Active Substance: DIGOXIN
  2. ALDACTONE [Concomitant]
     Active Substance: SPIRONOLACTONE
  3. LETAIRIS [Suspect]
     Active Substance: AMBRISENTAN
     Indication: COR PULMONALE CHRONIC
     Route: 048
     Dates: start: 20080314, end: 20080930
  4. PREDNISONE. [Concomitant]
     Active Substance: PREDNISONE
  5. COUMADIN [Concomitant]
     Active Substance: WARFARIN SODIUM
  6. IMURAN [Concomitant]
     Active Substance: AZATHIOPRINE
  7. ACTONEL [Concomitant]
     Active Substance: RISEDRONATE SODIUM
  8. FISH OIL [Concomitant]
     Active Substance: FISH OIL

REACTIONS (3)
  - Dry throat [Recovered/Resolved]
  - Cough [Recovered/Resolved]
  - Epistaxis [Recovered/Resolved]

NARRATIVE: CASE EVENT DATE: 20080919
